FAERS Safety Report 25451866 (Version 1)
Quarter: 2025Q2

REPORT INFORMATION
  Report Type: Spontaneous
  Country: US (occurrence: US)
  Receive Date: 20250618
  Receipt Date: 20250618
  Transmission Date: 20250717
  Serious: No
  Sender: SANOFI AVENTIS
  Company Number: US-SA-2025SA172369

PATIENT
  Age: 53 Year
  Sex: Female
  Weight: 30.839 kg

DRUGS (20)
  1. DUPIXENT [Suspect]
     Active Substance: DUPILUMAB
     Indication: Asthma
     Route: 058
     Dates: start: 20240726
  2. LAMOTRIGINE [Concomitant]
     Active Substance: LAMOTRIGINE
  3. SPIRONOLACTONE [Concomitant]
     Active Substance: SPIRONOLACTONE
  4. CELECOXIB [Concomitant]
     Active Substance: CELECOXIB
  5. GABAPENTIN [Concomitant]
     Active Substance: GABAPENTIN
  6. METOPROLOL [Concomitant]
     Active Substance: METOPROLOL
  7. BETAMETHASONE [Concomitant]
     Active Substance: BETAMETHASONE
  8. VITAMINS NOS [Concomitant]
     Active Substance: VITAMINS
  9. DIAZEPAM [Concomitant]
     Active Substance: DIAZEPAM
  10. IBUPROFEN [Concomitant]
     Active Substance: IBUPROFEN
  11. CYCLOBENZAPRINE [Concomitant]
     Active Substance: CYCLOBENZAPRINE
  12. ZOLPIDEM [Concomitant]
     Active Substance: ZOLPIDEM TARTRATE
  13. MELOXICAM [Concomitant]
     Active Substance: MELOXICAM
  14. LOSARTAN [Concomitant]
     Active Substance: LOSARTAN
  15. PREDNISONE [Concomitant]
     Active Substance: PREDNISONE
  16. QUETIAPINE [Concomitant]
     Active Substance: QUETIAPINE
  17. PANTOPRAZOLE [Concomitant]
     Active Substance: PANTOPRAZOLE
  18. FLUOXETINE [Concomitant]
     Active Substance: FLUOXETINE HYDROCHLORIDE
  19. NP THYROID [Concomitant]
     Active Substance: LEVOTHYROXINE\LIOTHYRONINE
  20. CLOBETASOL [Concomitant]
     Active Substance: CLOBETASOL

REACTIONS (1)
  - Injection site pain [Unknown]

NARRATIVE: CASE EVENT DATE: 20250613
